FAERS Safety Report 5696292-1 (Version None)
Quarter: 2008Q2

REPORT INFORMATION
  Report Type: 
  Country: None (occurrence: None)
  Receive Date: 20080407
  Receipt Date: 20080326
  Transmission Date: 20081010
  Serious: No
  Sender: FDA-Public Use
  Company Number: US-ELI_LILLY_AND_COMPANY-US200803000670

PATIENT
  Sex: Female

DRUGS (2)
  1. FORTEO [Suspect]
     Indication: OSTEOPOROSIS
     Route: 058
     Dates: start: 20070201
  2. EVISTA [Suspect]
     Indication: BONE DISORDER
     Dosage: UNK, UNK
     Dates: start: 20070201

REACTIONS (1)
  - SQUAMOUS CELL CARCINOMA OF SKIN [None]
